FAERS Safety Report 12098663 (Version 6)
Quarter: 2020Q4

REPORT INFORMATION
  Report Type: Spontaneous
  Country: KR (occurrence: KR)
  Receive Date: 20160222
  Receipt Date: 20201126
  Transmission Date: 20210113
  Serious: Yes (Hospitalization, Other)
  Sender: FDA-Public Use
  Company Number: KR-009507513-1602KOR008430

PATIENT
  Age: 71 Year
  Sex: Male
  Weight: 70 kg

DRUGS (18)
  1. DILATREND [Concomitant]
     Active Substance: CARVEDILOL
     Indication: CARDIAC FAILURE CONGESTIVE
     Dosage: 3.125 MILLIGRAM, BID
     Route: 048
     Dates: start: 20080829, end: 20151216
  2. MULTAQ [Concomitant]
     Active Substance: DRONEDARONE
     Indication: ATRIAL FLUTTER
     Dosage: 1 TAB, BID
     Route: 048
     Dates: start: 20150910, end: 20151216
  3. CYMBALTA [Concomitant]
     Active Substance: DULOXETINE HYDROCHLORIDE
     Indication: PERIPHERAL VASCULAR DISORDER
     Dosage: 30 MILLIGRAM, QD
     Route: 048
     Dates: start: 20150122, end: 20151217
  4. ACERTIL [Concomitant]
     Active Substance: PERINDOPRIL
     Dosage: 4 MG, QD
     Route: 048
     Dates: start: 20160111
  5. PROMAC (POLAPREZINC) [Concomitant]
     Active Substance: POLAPREZINC
     Indication: PROPHYLAXIS AGAINST GASTROINTESTINAL ULCER
     Dosage: 75 MILLIGRAM, BID
     Route: 048
     Dates: start: 20150604, end: 20151217
  6. OPALMON DONG A [Concomitant]
     Indication: LUMBAR SPINAL STENOSIS
     Dosage: UNK
     Route: 048
     Dates: start: 20160310
  7. KALIMATE [Concomitant]
     Active Substance: CALCIUM POLYSTYRENE SULFONATE
     Indication: HYPERKALAEMIA
     Dosage: 10 GRAM, QD
     Route: 048
     Dates: start: 20160106, end: 20160106
  8. CALCIUM GLUCONATE. [Concomitant]
     Active Substance: CALCIUM GLUCONATE
     Indication: HYPERKALAEMIA
     Dosage: 2 GRAM, QD
     Route: 042
     Dates: start: 20160106, end: 20160106
  9. ACERTIL [Concomitant]
     Active Substance: PERINDOPRIL
     Indication: ATRIAL FLUTTER
     Dosage: 2 MG, QD
     Route: 048
     Dates: start: 20150910, end: 20160110
  10. ULTRACET [Concomitant]
     Active Substance: ACETAMINOPHEN\TRAMADOL HYDROCHLORIDE
     Indication: OSTEOARTHRITIS
     Dosage: 1 TAB, BID
     Route: 048
     Dates: start: 20150122, end: 20151217
  11. ATOZET [Suspect]
     Active Substance: ATORVASTATIN CALCIUM\EZETIMIBE
     Indication: PRIMARY HYPERCHOLESTEROLAEMIA
     Dosage: 1 TABLET, ONCE DAILY
     Route: 048
     Dates: start: 20150921
  12. CELEBREX [Concomitant]
     Active Substance: CELECOXIB
     Indication: ROTATOR CUFF SYNDROME
     Dosage: 200 MILLIGRAM, QD
     Route: 048
     Dates: start: 20141124, end: 20151217
  13. OPALMON DONG A [Concomitant]
     Dosage: 1 TABLET, BID
     Route: 048
     Dates: start: 20150910, end: 20171217
  14. DILATREND [Concomitant]
     Active Substance: CARVEDILOL
     Indication: VENTRICULAR EXTRASYSTOLES
     Dosage: 6.25 MG, BID
     Route: 048
     Dates: start: 20151217, end: 20160106
  15. SERMION [Concomitant]
     Active Substance: NICERGOLINE
     Indication: PERIPHERAL ARTERIAL OCCLUSIVE DISEASE
     Dosage: 10 MG, BID
     Route: 048
     Dates: start: 20150620, end: 20160309
  16. CORDARONE [Concomitant]
     Active Substance: AMIODARONE HYDROCHLORIDE
     Indication: ATRIAL FLUTTER
     Dosage: 200 MG, BID
     Route: 048
     Dates: start: 20151217, end: 20160106
  17. CLOPIRIN [Concomitant]
     Indication: THROMBOSIS PROPHYLAXIS
     Dosage: 1 CAPSULE, QD
     Route: 048
     Dates: start: 20150910
  18. SYNATURA [Concomitant]
     Indication: COUGH
     Dosage: 15 MILLILITER, TID
     Route: 048
     Dates: start: 20160106, end: 20160111

REACTIONS (2)
  - Hyperkalaemia [Recovered/Resolved]
  - Bradycardia [Recovered/Resolved]

NARRATIVE: CASE EVENT DATE: 20160105
